FAERS Safety Report 12161982 (Version 1)
Quarter: 2016Q1

REPORT INFORMATION
  Report Type: Spontaneous
  Country: US (occurrence: None)
  Receive Date: 20160307
  Receipt Date: 20160307
  Transmission Date: 20160526
  Serious: No
  Sender: FDA-Public Use
  Company Number: None

PATIENT
  Age: 78 Year
  Sex: Male
  Weight: 113.4 kg

DRUGS (6)
  1. C-PAP MACHINE [Concomitant]
     Active Substance: DEVICE
  2. GABAPENTIN. [Concomitant]
     Active Substance: GABAPENTIN
  3. PRAMIPEXOLE. [Concomitant]
     Active Substance: PRAMIPEXOLE
  4. NEUPRO [Suspect]
     Active Substance: ROTIGOTINE
     Indication: RESTLESS LEGS SYNDROME
     Dosage: 1 PATCH/24 HOURS ONCE DAILY APPLIED AS MEDICATED PATCH TO SKIN
     Dates: start: 20160302, end: 20160303
  5. VIT. A [Concomitant]
  6. VIT. D [Concomitant]

REACTIONS (3)
  - Fatigue [None]
  - Condition aggravated [None]
  - Restless legs syndrome [None]

NARRATIVE: CASE EVENT DATE: 20160302
